FAERS Safety Report 10232733 (Version 1)
Quarter: 2014Q2

REPORT INFORMATION
  Report Type: Spontaneous
  Country: US (occurrence: None)
  Receive Date: 20140506
  Receipt Date: 20140506
  Transmission Date: 20141212
  Serious: Yes (Hospitalization)
  Sender: FDA-Public Use
  Company Number: 1243610

PATIENT
  Age: 83 Year
  Sex: Female

DRUGS (1)
  1. AVASTATIN (BEVACIZUMAB) [Suspect]
     Indication: METASTATIC RENAL CELL CARCINOMA
     Dosage: DATE OF MOST RECENT DOSE 11JUN13

REACTIONS (1)
  - Small intestinal obstruction [None]
